FAERS Safety Report 20025831 (Version 2)
Quarter: 2021Q4

REPORT INFORMATION
  Report Type: Spontaneous
  Country: FR (occurrence: FR)
  Receive Date: 20211102
  Receipt Date: 20211122
  Transmission Date: 20220303
  Serious: Yes (Other)
  Sender: FDA-Public Use
  Company Number: None

PATIENT
  Age: 64 Year
  Sex: Male

DRUGS (5)
  1. INLYTA [Suspect]
     Active Substance: AXITINIB
     Indication: Renal cancer
     Dosage: 10 MG, 1X/DAY
     Route: 048
     Dates: start: 20210510, end: 20211005
  2. INLYTA [Suspect]
     Active Substance: AXITINIB
     Dosage: 10 MG, 1X/DAY
     Route: 048
     Dates: start: 20211027
  3. KEYTRUDA [Suspect]
     Active Substance: PEMBROLIZUMAB
     Indication: Renal cancer
     Dosage: 200 MG, CYCLIC (7 CYCLES)
     Route: 042
     Dates: start: 20210510, end: 20210913
  4. HERBALS [Concomitant]
     Active Substance: HERBALS
     Dosage: UNK
  5. XGEVA [Concomitant]
     Active Substance: DENOSUMAB
     Dosage: UNK
     Dates: start: 20210712

REACTIONS (2)
  - Hepatocellular injury [Recovering/Resolving]
  - Off label use [Unknown]

NARRATIVE: CASE EVENT DATE: 20210510
